FAERS Safety Report 4515933-5 (Version None)
Quarter: 2004Q4

REPORT INFORMATION
  Report Type: 
  Country: None (occurrence: None)
  Receive Date: 20041201
  Receipt Date: 20041118
  Transmission Date: 20050328
  Serious: Yes (Hospitalization, Other)
  Sender: FDA-Public Use
  Company Number: 2004096039

PATIENT
  Sex: Female
  Weight: 68.0396 kg

DRUGS (5)
  1. LISTERINE (MENTHOL, METHYL SALICYLATE, EUCALYPTOL, THYMOL) [Suspect]
     Indication: DENTAL DISORDER PROPHYLAXIS
     Dosage: A MOUTHFUL TWICE A DAY, ORAL
     Route: 048
     Dates: start: 19840101
  2. MIRTAZAPINE [Concomitant]
  3. MODAFINIL [Concomitant]
  4. ALPRAZOLAM [Concomitant]
  5. DULOXETINE HYDROCHLORIDE (DULOXETINE HYDROCHLORIDE) [Concomitant]

REACTIONS (5)
  - BLOOD DISORDER [None]
  - IMMUNOSUPPRESSION [None]
  - LUNG INFECTION PSEUDOMONAL [None]
  - POISONING [None]
  - URINE ANALYSIS ABNORMAL [None]
